FAERS Safety Report 18210070 (Version 1)
Quarter: 2020Q3

REPORT INFORMATION
  Report Type: Spontaneous
  Country: US (occurrence: US)
  Receive Date: 20200829
  Receipt Date: 20200829
  Transmission Date: 20201103
  Serious: Yes (Other)
  Sender: FDA-Public Use
  Company Number: US-DRREDDYS-USA/USA/20/0126442

PATIENT
  Age: 69 Year
  Sex: Male

DRUGS (10)
  1. CARBIDOPA 50 MG, LEVODOPA 200 MG [Concomitant]
     Dosage: CARBIDOPA/LEVODOPA (50/200 MG), AT BEDTIME
  2. CARBIDOPA 50 MG, LEVODOPA 200 MG [Concomitant]
     Indication: PARKINSON^S DISEASE
     Dosage: DOSAGE AND NUMBER GRADUALLY INCREASED OVER THE PAST 5?6 YEARS
  3. ROPINIROLE HYDROCHLORIDE XR 2 MG, 4 MG, 6 MG, 8 MG AND 12 MG TABLETS [Suspect]
     Active Substance: ROPINIROLE HYDROCHLORIDE
     Dosage: DOSAGE AND NUMBER GRADUALLY INCREASED OVER THE PAST 5?6 YEARS
  4. ENTACAPONE 200 MG [Concomitant]
     Active Substance: ENTACAPONE
     Indication: PARKINSON^S DISEASE
     Dosage: DOSAGE AND NUMBER GRADUALLY INCREASED OVER THE PAST 5?6 YEARS
  5. CARBIDOPA 25 MG, LEVODOPA 250 MG [Concomitant]
     Indication: PARKINSON^S DISEASE
     Dosage: CARBIDOPA/LEVODOPA (25/250 MG), 5 TIMES A DAY
  6. CARBIDOPA 25 MG, LEVODOPA 250 MG [Concomitant]
     Dosage: DOSAGE AND NUMBER GRADUALLY INCREASED OVER THE PAST 5?6 YEARS
  7. RASAGILINE. [Suspect]
     Active Substance: RASAGILINE
     Indication: PARKINSON^S DISEASE
     Dosage: DOSAGE AND NUMBER GRADUALLY INCREASED OVER THE PAST 5?6 YEARS
  8. RASAGILINE. [Suspect]
     Active Substance: RASAGILINE
  9. ROPINIROLE HYDROCHLORIDE XR 2 MG, 4 MG, 6 MG, 8 MG AND 12 MG TABLETS [Suspect]
     Active Substance: ROPINIROLE HYDROCHLORIDE
     Indication: PARKINSON^S DISEASE
     Dosage: 5 TIMES A DAY
  10. ENTACAPONE 200 MG [Concomitant]
     Active Substance: ENTACAPONE
     Dosage: 5 TIMES A DAY

REACTIONS (2)
  - Hallucination, visual [Recovering/Resolving]
  - Insomnia [Recovering/Resolving]
